FAERS Safety Report 8513070-6 (Version None)
Quarter: 2012Q3

REPORT INFORMATION
  Report Type: 
  Country: None (occurrence: None)
  Receive Date: 20120705
  Receipt Date: 20120620
  Transmission Date: 20120928
  Serious: Yes (Other)
  Sender: FDA-Public Use
  Company Number: 2012MA007803

PATIENT
  Age: 74 Year
  Sex: Female

DRUGS (1)
  1. PACLITAXEL [Suspect]
     Indication: BREAST CANCER FEMALE
     Dosage: 145 MG;1X;IV
     Route: 042
     Dates: start: 20120604, end: 20120604

REACTIONS (4)
  - CYANOSIS [None]
  - LOSS OF CONSCIOUSNESS [None]
  - INFUSION RELATED REACTION [None]
  - SPINAL PAIN [None]
